FAERS Safety Report 22330909 (Version 1)
Quarter: 2023Q2

REPORT INFORMATION
  Report Type: Spontaneous
  Country: US (occurrence: None)
  Receive Date: 20230515
  Receipt Date: 20230515
  Transmission Date: 20230722
  Serious: Yes (unspecified)
  Sender: FDA-Public Use
  Company Number: None

PATIENT
  Age: 59 Year
  Sex: Male
  Weight: 86.4 kg

DRUGS (21)
  1. BUPRENORPHINE SUBLINGUAL [Suspect]
     Active Substance: BUPRENORPHINE HYDROCHLORIDE
     Indication: Pain
     Dosage: FREQUENCY : EVERY 8 HOURS;?
     Route: 060
     Dates: start: 20221122, end: 20230428
  2. RELISTOR [Concomitant]
     Active Substance: METHYLNALTREXONE BROMIDE
  3. LOTENSIN [Concomitant]
     Active Substance: BENAZEPRIL HYDROCHLORIDE
  4. LIPITOR [Concomitant]
     Active Substance: ATORVASTATIN CALCIUM
  5. ASPIRIN [Concomitant]
     Active Substance: ASPIRIN
  6. LYRICA [Concomitant]
     Active Substance: PREGABALIN
  7. HYALURONIC ACID [Concomitant]
     Active Substance: HYALURONIC ACID
  8. Costco Multi-vitamin [Concomitant]
  9. Ester-C [Concomitant]
  10. N-Acetyl-Cysteine NAC [Concomitant]
  11. PRASTERONE [Concomitant]
     Active Substance: PRASTERONE
  12. FISH OIL [Concomitant]
     Active Substance: FISH OIL
  13. KRILL OIL [Concomitant]
     Active Substance: DIETARY SUPPLEMENT\KRILL OIL
  14. HERBALS\TURMERIC [Concomitant]
     Active Substance: HERBALS\TURMERIC
  15. FOLIC ACID [Concomitant]
     Active Substance: FOLIC ACID
  16. MAGNESIUM [Concomitant]
  17. ZINC [Concomitant]
     Active Substance: ZINC
  18. FLAXSEED [Concomitant]
     Active Substance: FLAX SEED
  19. Glucosamine-Condroitin [Concomitant]
  20. CHROMIUM PICOLINATE [Concomitant]
     Active Substance: CHROMIUM PICOLINATE
  21. BIOTIN [Concomitant]
     Active Substance: BIOTIN

REACTIONS (15)
  - Toothache [None]
  - Tooth infection [None]
  - Gingival swelling [None]
  - Paraesthesia [None]
  - Hypoaesthesia [None]
  - Hypoaesthesia [None]
  - Dry mouth [None]
  - Constipation [None]
  - Insomnia [None]
  - Somnolence [None]
  - Depression [None]
  - Hyperhidrosis [None]
  - Product use complaint [None]
  - Intentional dose omission [None]
  - Product dosage form issue [None]

NARRATIVE: CASE EVENT DATE: 20230428
